FAERS Safety Report 6318135-5 (Version None)
Quarter: 2009Q3

REPORT INFORMATION
  Report Type: 
  Country: None (occurrence: None)
  Receive Date: 20090821
  Receipt Date: 20090812
  Transmission Date: 20100115
  Serious: Yes (Hospitalization)
  Sender: FDA-Public Use
  Company Number: A0701535A

PATIENT
  Age: 55 Year
  Sex: Male
  Weight: 109.1 kg

DRUGS (9)
  1. AVANDIA [Suspect]
     Indication: TYPE 2 DIABETES MELLITUS
     Dosage: 4MG PER DAY
     Route: 048
     Dates: start: 20020113, end: 20051226
  2. NOVOLIN R [Concomitant]
  3. STARLIX [Concomitant]
     Dates: start: 20030901
  4. ZOLOFT [Concomitant]
  5. VASOTEC [Concomitant]
  6. METOPROLOL [Concomitant]
  7. LOVASTATIN [Concomitant]
  8. LISINOPRIL [Concomitant]
  9. PRAVACHOL [Concomitant]

REACTIONS (32)
  - ANXIETY [None]
  - AORTIC VALVE INCOMPETENCE [None]
  - ARTERIOSCLEROSIS [None]
  - BLOOD PRESSURE INADEQUATELY CONTROLLED [None]
  - CARDIAC DISORDER [None]
  - CARDIAC FAILURE CONGESTIVE [None]
  - CORONARY ARTERY DISEASE [None]
  - CORONARY ARTERY STENOSIS [None]
  - CORONARY ARTERY THROMBOSIS [None]
  - ECONOMIC PROBLEM [None]
  - EMOTIONAL DISTRESS [None]
  - ESSENTIAL HYPERTENSION [None]
  - FEAR [None]
  - HYPERLIPIDAEMIA [None]
  - ISCHAEMIC CARDIOMYOPATHY [None]
  - LIFE EXPECTANCY SHORTENED [None]
  - LOSS OF CONSCIOUSNESS [None]
  - MENTAL DISORDER [None]
  - MITRAL VALVE INCOMPETENCE [None]
  - MULTIPLE INJURIES [None]
  - MYOCARDIAL INFARCTION [None]
  - NAUSEA [None]
  - PAIN [None]
  - PRESYNCOPE [None]
  - QUALITY OF LIFE DECREASED [None]
  - SINUS TACHYCARDIA [None]
  - SOCIAL PROBLEM [None]
  - TONGUE BITING [None]
  - TONGUE HAEMATOMA [None]
  - TONIC CLONIC MOVEMENTS [None]
  - TREATMENT NONCOMPLIANCE [None]
  - VOMITING [None]
